FAERS Safety Report 5867414-4 (Version None)
Quarter: 2008Q3

REPORT INFORMATION
  Report Type: 
  Country: None (occurrence: None)
  Receive Date: 20080902
  Receipt Date: 20080826
  Transmission Date: 20090109
  Serious: Yes (Hospitalization)
  Sender: FDA-Public Use
  Company Number: PHHY2008DE19360

PATIENT
  Sex: Male

DRUGS (2)
  1. DIOVAN [Suspect]
     Dosage: UNK
  2. PROVAS COMP [Suspect]
     Dosage: UNK MG, UNK
     Dates: start: 20050101

REACTIONS (2)
  - DIABETIC FOOT [None]
  - PRURITUS [None]
